FAERS Safety Report 5643746-X (Version None)
Quarter: 2008Q1

REPORT INFORMATION
  Report Type: 
  Country: None (occurrence: None)
  Receive Date: 20080228
  Receipt Date: 20080226
  Transmission Date: 20080703
  Serious: Yes (Hospitalization)
  Sender: FDA-Public Use
  Company Number: US-ABBOTT-08P-163-0439830-00

PATIENT
  Age: 5 Year
  Sex: Male
  Weight: 21.792 kg

DRUGS (1)
  1. OMNICEF [Suspect]
     Indication: SINUSITIS
     Route: 048
     Dates: start: 20080119, end: 20080201

REACTIONS (4)
  - OEDEMA [None]
  - PAIN [None]
  - PRURITUS [None]
  - URTICARIA [None]
